FAERS Safety Report 4894754-8 (Version None)
Quarter: 2006Q1

REPORT INFORMATION
  Report Type: 
  Country: None (occurrence: None)
  Receive Date: 20060126
  Receipt Date: 20060126
  Transmission Date: 20060701
  Serious: Yes (Life-Threatening)
  Sender: FDA-Public Use
  Company Number: None

PATIENT
  Age: 44 Year
  Sex: Male
  Weight: 120 kg

DRUGS (1)
  1. XOLAIR [Suspect]
     Indication: ASTHMA
     Dosage: 300MG   Q2-4  WKS    SQ
     Route: 058

REACTIONS (3)
  - IMPAIRED HEALING [None]
  - MULTIPLE MYELOMA [None]
  - RIB FRACTURE [None]
